FAERS Safety Report 19475118 (Version 1)
Quarter: 2021Q2

REPORT INFORMATION
  Report Type: Spontaneous
  Country: AU (occurrence: AU)
  Receive Date: 20210630
  Receipt Date: 20210630
  Transmission Date: 20210717
  Serious: Yes (Hospitalization)
  Sender: FDA-Public Use
  Company Number: AU-ROCHE-2856467

PATIENT
  Age: 31 Year
  Sex: Male

DRUGS (1)
  1. PEGASYS [Suspect]
     Active Substance: PEGINTERFERON ALFA-2A
     Indication: ERDHEIM-CHESTER DISEASE
     Route: 065

REACTIONS (3)
  - Off label use [Unknown]
  - General physical health deterioration [Unknown]
  - Renal impairment [Unknown]
